FAERS Safety Report 6969567-3 (Version None)
Quarter: 2010Q3

REPORT INFORMATION
  Report Type: 
  Country: None (occurrence: None)
  Receive Date: 20100907
  Receipt Date: 20100907
  Transmission Date: 20110219
  Serious: No
  Sender: FDA-Public Use
  Company Number: None

PATIENT
  Age: 56 Year
  Sex: Male
  Weight: 102.0593 kg

DRUGS (1)
  1. COMMIT [Suspect]
     Indication: SMOKING CESSATION THERAPY
     Dosage: 2MG AS NEEDED PO
     Route: 048
     Dates: start: 20070101, end: 20100905

REACTIONS (5)
  - CHEMICAL INJURY [None]
  - DRUG DEPENDENCE [None]
  - ENDOCARDITIS [None]
  - GINGIVAL EROSION [None]
  - TOOTH LOSS [None]
